FAERS Safety Report 6390429-7 (Version None)
Quarter: 2009Q4

REPORT INFORMATION
  Report Type: 
  Country: None (occurrence: None)
  Receive Date: 20091006
  Receipt Date: 20090921
  Transmission Date: 20100525
  Serious: Yes (Other)
  Sender: FDA-Public Use
  Company Number: US-BAYER-200933976NA

PATIENT
  Age: 67 Year
  Sex: Female
  Weight: 98 kg

DRUGS (5)
  1. MAGNEVIST [Suspect]
     Indication: ANGIOGRAM
     Dosage: TOTAL DAILY DOSE: 40 ML
     Route: 042
     Dates: start: 20051228, end: 20051228
  2. PROCRIT [Concomitant]
  3. ARANESP [Concomitant]
  4. AMBIEN [Concomitant]
  5. FUROSEMIDE [Concomitant]

REACTIONS (10)
  - DERMATITIS [None]
  - HYPOAESTHESIA [None]
  - NEPHROGENIC SYSTEMIC FIBROSIS [None]
  - PAIN [None]
  - PEAU D'ORANGE [None]
  - PRURITUS [None]
  - RASH GENERALISED [None]
  - SKIN HYPERTROPHY [None]
  - SKIN INDURATION [None]
  - SKIN PLAQUE [None]
